FAERS Safety Report 5833897-9 (Version None)
Quarter: 2008Q3

REPORT INFORMATION
  Report Type: 
  Country: None (occurrence: None)
  Receive Date: 20080805
  Receipt Date: 20080729
  Transmission Date: 20090109
  Serious: Yes (Life-Threatening, Hospitalization, Other)
  Sender: FDA-Public Use
  Company Number: A0740982A

PATIENT
  Age: 35 Year
  Sex: Female

DRUGS (2)
  1. FOSAMPRENAVIR [Suspect]
     Indication: HIV INFECTION
     Dosage: 1400MGD PER DAY
     Route: 048
     Dates: start: 20080122, end: 20080620
  2. MIGRAL [Suspect]

REACTIONS (3)
  - ERGOT POISONING [None]
  - PAIN IN EXTREMITY [None]
  - PERIPHERAL ISCHAEMIA [None]
